FAERS Safety Report 8439372 (Version 2)
Quarter: 2013Q2

REPORT INFORMATION
  Report Type: Spontaneous
  Country: US (occurrence: None)
  Receive Date: 20120104
  Receipt Date: 20120508
  Transmission Date: 20140414
  Serious: No
  Sender: FDA-Public Use
  Company Number: 2011HGS-002726

PATIENT
  Age: 46 Year
  Sex: Male
  Weight: 154.22 kg

DRUGS (8)
  1. BENLYSTA [Suspect]
     Indication: SYSTEMIC LUPUS ERYTHEMATOSUS
     Dosage: 1529 MG1 IN 28 D, INTRAVENOUS DRIP
     Route: 041
     Dates: start: 20110817
  2. CELLCEPT (MYCOPHENOLATE MOFETIL) (MYCOPHENOLATE MOFEITL) [Concomitant]
  3. PLAQUENIL (HYDROXYCHLOROQUINE SULFATE) (HYDROXYCHLOROQUINE SULFATE) [Concomitant]
  4. ALLOPURINOL [Concomitant]
  5. SIMVASTATIN [Concomitant]
  6. ASPIRIN [Concomitant]
  7. AMBIEN (ZOLPIDEM) (ZOLPIDEM) [Concomitant]
  8. XANAX [Concomitant]

REACTIONS (6)
  - LIBIDO DECREASED [None]
  - NASAL CONGESTION [None]
  - DYSPNOEA [None]
  - DEPRESSION [None]
  - ANXIETY [None]
  - HEADACHE [None]
